FAERS Safety Report 25493188 (Version 2)
Quarter: 2025Q4

REPORT INFORMATION
  Report Type: Spontaneous
  Country: EU (occurrence: EU)
  Receive Date: 20250630
  Receipt Date: 20251210
  Transmission Date: 20260119
  Serious: Yes (Other)
  Sender: Kenvue
  Company Number: EU-ELI_LILLY_AND_COMPANY-ES202411002302

PATIENT
  Age: 51 Year

DRUGS (9)
  1. LOPERAMIDE HYDROCHLORIDE [Suspect]
     Active Substance: LOPERAMIDE HYDROCHLORIDE
     Indication: Diarrhoea
     Dosage: UNK, UNKNOWN
     Route: 065
  2. ABEMACICLIB [Suspect]
     Active Substance: ABEMACICLIB
     Indication: Breast cancer
     Dosage: 150 MG, UNKNOWN
  3. ABEMACICLIB [Suspect]
     Active Substance: ABEMACICLIB
     Dosage: 100 MG, UNKNOWN
  4. ABEMACICLIB [Suspect]
     Active Substance: ABEMACICLIB
     Dosage: 100 MG, UNKNOWN
  5. ABEMACICLIB [Suspect]
     Active Substance: ABEMACICLIB
     Dosage: 100 MG, UNKNOWN
  6. ABEMACICLIB [Suspect]
     Active Substance: ABEMACICLIB
     Dosage: 100 MG, UNKNOWN
  7. ABEMACICLIB [Suspect]
     Active Substance: ABEMACICLIB
     Dosage: 100 MG, UNKNOWN
  8. LETROZOLE [Concomitant]
     Active Substance: LETROZOLE
     Indication: Breast cancer
     Dosage: UNK
     Route: 065
  9. Decapeptyl [Concomitant]
     Indication: Breast cancer
     Dosage: UNK
     Route: 065

REACTIONS (29)
  - Large intestinal ulcer [Recovered/Resolved]
  - Feeling abnormal [Unknown]
  - Illness [Recovering/Resolving]
  - Flatulence [Recovering/Resolving]
  - Discomfort [Recovering/Resolving]
  - Abdominal pain [Recovering/Resolving]
  - Malaise [Recovered/Resolved]
  - Cognitive disorder [Unknown]
  - Nervousness [Recovering/Resolving]
  - Weight increased [Recovered/Resolved]
  - Swelling [Recovered/Resolved]
  - Anxiety [Recovering/Resolving]
  - Sleep disorder due to general medical condition, insomnia type [Recovering/Resolving]
  - Breast inflammation [Recovering/Resolving]
  - Functional gastrointestinal disorder [Recovering/Resolving]
  - Dyschezia [Recovering/Resolving]
  - Tumour marker increased [Recovering/Resolving]
  - Memory impairment [Recovering/Resolving]
  - Parosmia [Recovering/Resolving]
  - Taste disorder [Recovering/Resolving]
  - Abdominal pain upper [Recovering/Resolving]
  - Dyspepsia [Recovering/Resolving]
  - Diarrhoea [Recovered/Resolved]
  - Diarrhoea [Recovering/Resolving]
  - Fatigue [Recovered/Resolved]
  - Nausea [Recovered/Resolved]
  - Decreased appetite [Recovering/Resolving]
  - Abdominal distension [Recovering/Resolving]
  - Dizziness [Recovered/Resolved]
